FAERS Safety Report 7768803-3 (Version None)
Quarter: 2011Q3

REPORT INFORMATION
  Report Type: 
  Country: None (occurrence: None)
  Receive Date: 20110922
  Receipt Date: 20110902
  Transmission Date: 20111222
  Serious: Yes (Other)
  Sender: FDA-Public Use
  Company Number: US-PURDUE-USA-2011-0068822

PATIENT
  Sex: Female

DRUGS (2)
  1. OXYCONTIN [Suspect]
     Dosage: 20 MG, BID
  2. OXYCONTIN [Suspect]
     Indication: PAIN
     Dosage: 20 MG, TID

REACTIONS (5)
  - BILIARY TRACT DISORDER [None]
  - ABDOMINAL PAIN UPPER [None]
  - ALANINE AMINOTRANSFERASE INCREASED [None]
  - BLOOD ALKALINE PHOSPHATASE INCREASED [None]
  - ASPARTATE AMINOTRANSFERASE INCREASED [None]
